FAERS Safety Report 18172434 (Version 1)
Quarter: 2020Q3

REPORT INFORMATION
  Report Type: Report from Study
  Country: HK (occurrence: HK)
  Receive Date: 20200820
  Receipt Date: 20200820
  Transmission Date: 20201103
  Serious: Yes (Death, Hospitalization)
  Sender: FDA-Public Use
  Company Number: HK-TEVA-2020-HK-1817449

PATIENT
  Age: 49 Year
  Sex: Female
  Weight: 51 kg

DRUGS (16)
  1. SENNA ALEXANDRINA [Concomitant]
     Active Substance: SENNA LEAF
     Indication: CONSTIPATION
     Dates: start: 20180401, end: 20180423
  2. IRINOTECAN [Suspect]
     Active Substance: IRINOTECAN
     Indication: COLORECTAL CANCER METASTATIC
     Dosage: FORTNIGHTY
     Route: 042
     Dates: start: 20180327, end: 20180417
  3. AUGMENTIN [Concomitant]
     Active Substance: AMOXICILLIN\CLAVULANATE POTASSIUM
     Dates: start: 20180401, end: 20180402
  4. HYOSCINE METHOBROMIDE [Concomitant]
     Dates: start: 20180401, end: 20180423
  5. AMPICILLIN [Concomitant]
     Active Substance: AMPICILLIN
     Dates: start: 20180321, end: 20180328
  6. FLUOROURACIL. [Suspect]
     Active Substance: FLUOROURACIL
     Dosage: EVERY TWO WEEKS.
     Route: 042
     Dates: start: 20180327
  7. LOPERAMIDE [Concomitant]
     Active Substance: LOPERAMIDE
     Dates: start: 20180327, end: 20180416
  8. ATROPINE SULFATE. [Concomitant]
     Active Substance: ATROPINE SULFATE
     Dates: start: 20180327, end: 20180328
  9. FLUOROURACIL. [Suspect]
     Active Substance: FLUOROURACIL
     Indication: COLORECTAL CANCER METASTATIC
     Dosage: EVERY TWO WEEKS.
     Route: 040
     Dates: start: 20180327, end: 20180417
  10. METOCLOPRAMIDE. [Concomitant]
     Active Substance: METOCLOPRAMIDE
     Dates: start: 20180327, end: 20180416
  11. LEUCOVORIN. [Concomitant]
     Active Substance: LEUCOVORIN
     Indication: COLORECTAL CANCER METASTATIC
     Dosage: FORTNIGHTY
     Route: 042
     Dates: start: 20180327, end: 20180417
  12. BISACODYL. [Concomitant]
     Active Substance: BISACODYL
     Indication: CONSTIPATION
     Dates: start: 20180401, end: 20180423
  13. CLOXACILLIN [Concomitant]
     Active Substance: CLOXACILLIN
     Dates: start: 20180321, end: 20180328
  14. LORAZEPAM. [Concomitant]
     Active Substance: LORAZEPAM
     Dates: start: 20180402, end: 20180405
  15. ONDANSETRON [Concomitant]
     Active Substance: ONDANSETRON
  16. PARACETAMOL [Concomitant]
     Active Substance: ACETAMINOPHEN
     Dates: start: 20180401, end: 20180423

REACTIONS (1)
  - Febrile neutropenia [Recovered/Resolved]

NARRATIVE: CASE EVENT DATE: 20180406
